FAERS Safety Report 9337143 (Version 1)
Quarter: 2013Q2

REPORT INFORMATION
  Report Type: Spontaneous
  Country: FR (occurrence: FR)
  Receive Date: 20130607
  Receipt Date: 20130607
  Transmission Date: 20140414
  Serious: Yes (Hospitalization)
  Sender: FDA-Public Use
  Company Number: FR-JNJFOC-20130520264

PATIENT
  Age: 66 Year
  Sex: Male

DRUGS (11)
  1. ACTIFED ALLERGIE CETIRIZINE [Suspect]
     Route: 048
  2. ACTIFED ALLERGIE CETIRIZINE [Suspect]
     Indication: PRODUCT USED FOR UNKNOWN INDICATION
     Route: 048
     Dates: start: 20130222
  3. ATROVENT [Suspect]
     Indication: PRODUCT USED FOR UNKNOWN INDICATION
     Route: 055
     Dates: start: 20130222
  4. LERCAPIN [Concomitant]
  5. EUPRESSYL [Concomitant]
  6. LASILIX [Concomitant]
  7. HYPERIUM [Concomitant]
  8. TAHOR [Concomitant]
  9. INEXIUM [Concomitant]
  10. ZOLPIDEM [Concomitant]
  11. TEMERIT [Concomitant]

REACTIONS (2)
  - Rash maculo-papular [Recovered/Resolved]
  - Pyrexia [Recovered/Resolved]
